FAERS Safety Report 8148695 (Version 2)
Quarter: 2013Q1

REPORT INFORMATION
  Report Type: Spontaneous
  Country: US (occurrence: US)
  Receive Date: 20110922
  Receipt Date: 20130215
  Transmission Date: 20140127
  Serious: Yes (Other)
  Sender: FDA-Public Use
  Company Number: US-ASTRAZENECA-2011SE12671

PATIENT
  Sex: Female

DRUGS (11)
  1. SEROQUEL [Suspect]
     Route: 048
     Dates: start: 20051129, end: 20051129
  2. SEROQUEL [Suspect]
     Route: 048
     Dates: start: 20060104, end: 20060104
  3. SEROQUEL [Suspect]
     Route: 048
     Dates: start: 20060202, end: 20060202
  4. SEROQUEL [Suspect]
     Route: 048
     Dates: start: 20070428, end: 20070428
  5. SEROQUEL [Suspect]
     Route: 048
     Dates: start: 20070428, end: 20070428
  6. SEROQUEL [Suspect]
     Route: 048
     Dates: start: 20070507, end: 20120516
  7. SEROQUEL [Suspect]
     Dosage: ONE TAB AT BED TIME.TAKE HALF TAB QD FOR WEEK THEN WHOLE TAB QD FOR WEEK THEN 2 TABS QD FOR WEEKS
     Route: 048
     Dates: start: 20091224
  8. ZOCOR [Concomitant]
     Route: 048
     Dates: start: 20091224
  9. XANAX [Concomitant]
     Route: 048
     Dates: start: 20091224
  10. DESYREL [Concomitant]
     Route: 048
     Dates: start: 20091224
  11. ZANTAC [Concomitant]
     Route: 048
     Dates: start: 20091224

REACTIONS (3)
  - Pancreatitis [Unknown]
  - Diabetic coma [Unknown]
  - Type 2 diabetes mellitus [Unknown]
